FAERS Safety Report 12337580 (Version 1)
Quarter: 2016Q2

REPORT INFORMATION
  Report Type: Spontaneous
  Country: US (occurrence: US)
  Receive Date: 20160505
  Receipt Date: 20160505
  Transmission Date: 20160815
  Serious: Yes (Other)
  Sender: FDA-Public Use
  Company Number: US-BAYER-2015-013600

PATIENT
  Age: 28 Year
  Sex: Female
  Weight: 63.5 kg

DRUGS (5)
  1. XARELTO [Suspect]
     Active Substance: RIVAROXABAN
     Indication: EMBOLISM VENOUS
  2. XARELTO [Suspect]
     Active Substance: RIVAROXABAN
     Indication: DEEP VEIN THROMBOSIS
  3. ACETYLSALICYLIC ACID({=100 MG) [Suspect]
     Active Substance: ASPIRIN
     Dosage: 81 MG, UNK
     Route: 065
  4. NEURONTIN [Concomitant]
     Active Substance: GABAPENTIN
     Indication: NEUROPATHY PERIPHERAL
     Dosage: 600 MG, TID
     Route: 048
     Dates: start: 2008
  5. XARELTO [Suspect]
     Active Substance: RIVAROXABAN
     Indication: PULMONARY EMBOLISM
     Dosage: 15 MG, UNK
     Route: 048
     Dates: start: 20140109, end: 20141225

REACTIONS (7)
  - Abdominal pain upper [Not Recovered/Not Resolved]
  - Abdominal pain lower [Unknown]
  - Incorrect dose administered [Not Recovered/Not Resolved]
  - Drug dose omission [Not Recovered/Not Resolved]
  - Haemorrhage [Not Recovered/Not Resolved]
  - Abdominal distension [Not Recovered/Not Resolved]
  - Groin pain [Unknown]

NARRATIVE: CASE EVENT DATE: 20140108
